FAERS Safety Report 7227348-X (Version None)
Quarter: 2011Q1

REPORT INFORMATION
  Report Type: 
  Country: None (occurrence: None)
  Receive Date: 20110114
  Receipt Date: 20110111
  Transmission Date: 20110831
  Serious: Yes (Hospitalization)
  Sender: FDA-Public Use
  Company Number: DE-SANOFI-AVENTIS-2011SA001670

PATIENT
  Age: 61 Year
  Sex: Female
  Weight: 86 kg

DRUGS (5)
  1. DOCETAXEL [Suspect]
     Indication: BREAST CANCER
     Route: 041
     Dates: start: 20110110, end: 20110110
  2. CYCLOPHOSPHAMIDE [Suspect]
     Indication: BREAST CANCER
     Route: 041
     Dates: start: 20110110, end: 20110110
  3. DEXAMETHASONE [Concomitant]
     Route: 048
     Dates: start: 20110103, end: 20110105
  4. ONDANSETRON [Concomitant]
     Route: 042
     Dates: start: 20110104, end: 20110104
  5. UROMITEXAN [Concomitant]
     Route: 041
     Dates: start: 20110104, end: 20110104

REACTIONS (1)
  - CARDIOMYOPATHY [None]
